FAERS Safety Report 13064200 (Version 1)
Quarter: 2016Q4

REPORT INFORMATION
  Report Type: Report from Study
  Country: US (occurrence: US)
  Receive Date: 20161227
  Receipt Date: 20161227
  Transmission Date: 20170207
  Serious: Yes (Other)
  Sender: FDA-Public Use
  Company Number: PHEH2016US033165

PATIENT
  Age: 63 Year
  Sex: Male
  Weight: 112.4 kg

DRUGS (2)
  1. COSENTYX [Suspect]
     Active Substance: SECUKINUMAB
     Indication: PSORIASIS
  2. COSENTYX [Suspect]
     Active Substance: SECUKINUMAB
     Indication: DYSPHAGIA
     Dosage: 300 MG, QMO
     Route: 058
     Dates: start: 20161125

REACTIONS (3)
  - Dysphagia [Recovered/Resolved]
  - Pharyngeal oedema [Unknown]
  - Dyspnoea [Recovered/Resolved]

NARRATIVE: CASE EVENT DATE: 201611
